FAERS Safety Report 5070562-2 (Version None)
Quarter: 2006Q3

REPORT INFORMATION
  Report Type: 
  Country: None (occurrence: None)
  Receive Date: 20060804
  Receipt Date: 20050608
  Transmission Date: 20061208
  Serious: No
  Sender: FDA-Public Use
  Company Number: US-GLAXOSMITHKLINE-A0561785A

PATIENT
  Age: 37 Year
  Sex: Female

DRUGS (1)
  1. NICORETTE [Suspect]
     Dates: start: 20050606, end: 20050606

REACTIONS (4)
  - NAUSEA [None]
  - ORAL DISCOMFORT [None]
  - SENSATION OF FOREIGN BODY [None]
  - VOMITING [None]
